FAERS Safety Report 5230401-3 (Version None)
Quarter: 2007Q1

REPORT INFORMATION
  Report Type: 
  Country: None (occurrence: None)
  Receive Date: 20070201
  Receipt Date: 20070119
  Transmission Date: 20070707
  Serious: Yes (Hospitalization)
  Sender: FDA-Public Use
  Company Number: 2006JP005492

PATIENT
  Age: 48 Year
  Sex: Female
  Weight: 41 kg

DRUGS (13)
  1. TACROLIMUS CAPSULES (TACROLIMUS CAPSULES) CAPSULE [Suspect]
     Indication: RHEUMATOID ARTHRITIS
     Dosage: SEE IMAGE, ORAL
     Route: 048
     Dates: start: 20060524, end: 20060525
  2. TACROLIMUS CAPSULES (TACROLIMUS CAPSULES) CAPSULE [Suspect]
     Indication: RHEUMATOID ARTHRITIS
     Dosage: SEE IMAGE, ORAL
     Route: 048
     Dates: start: 20060601, end: 20060607
  3. TACROLIMUS CAPSULES (TACROLIMUS CAPSULES) CAPSULE [Suspect]
     Indication: RHEUMATOID ARTHRITIS
     Dosage: SEE IMAGE, ORAL
     Route: 048
     Dates: start: 20060613
  4. PREDNISOLONE [Concomitant]
  5. BAKTAR (SULFAMETHOXAZOLE, TRIMETHOPRIM) [Concomitant]
  6. DIFLUCAN (FLUCONAZOLE) CAPSULE [Concomitant]
  7. LANSOPRAZOLE [Concomitant]
  8. ISODINE (POVIDONE-IODINE) MOUTH WASH [Concomitant]
  9. FUNGIZONE [Concomitant]
  10. FOSAMAC (ALENDRONATE SODIUM) TABLET [Concomitant]
  11. ALFAROL (ALFACALCIDOL) [Concomitant]
  12. SODIUM BICARBONATE (SODIUM BICARBONATE) MOUTH WASH [Concomitant]
  13. CEVIMELINE HYDROCHLORIDE (CEVIMELINE HYDROCHLORIDE) CAPSULE [Concomitant]

REACTIONS (8)
  - ARTHRALGIA [None]
  - ELECTROCARDIOGRAM ST SEGMENT ELEVATION [None]
  - HYPERKALAEMIA [None]
  - PHARYNGOLARYNGEAL PAIN [None]
  - PLEURAL EFFUSION [None]
  - RENAL IMPAIRMENT [None]
  - UPPER RESPIRATORY TRACT INFLAMMATION [None]
  - VIRAL PERICARDITIS [None]
